FAERS Safety Report 10177927 (Version 1)
Quarter: 2014Q2

REPORT INFORMATION
  Report Type: Spontaneous
  Country: TW (occurrence: TW)
  Receive Date: 20140516
  Receipt Date: 20140516
  Transmission Date: 20141212
  Serious: Yes (Death)
  Sender: FDA-Public Use
  Company Number: PHHY2014TW059170

PATIENT
  Age: 45 Year
  Sex: Female

DRUGS (7)
  1. CICLOSPORIN [Suspect]
     Indication: IMMUNOSUPPRESSION
     Dosage: 200 MG, PER DAY
  2. AMINOPHYLLINE [Suspect]
     Indication: DYSPNOEA
  3. PREDNISOLONE [Suspect]
     Indication: IMMUNOSUPPRESSION
     Dosage: 60 MG, PER DAY
  4. METHYLPREDNISOLONE [Suspect]
     Indication: IMMUNOSUPPRESSION
     Dosage: 1000 MG
  5. CEPHAZOLIN [Suspect]
     Indication: DYSPNOEA
  6. GENTAMYCEN [Suspect]
     Indication: DYSPNOEA
  7. IMMUNOGLOBULIN I.V [Suspect]
     Indication: DYSPNOEA
     Dosage: 400 MG\DAY FOR 5 DAYS
     Route: 042

REACTIONS (3)
  - Death [Fatal]
  - Rash [Unknown]
  - Drug ineffective [Unknown]
